FAERS Safety Report 5122538-4 (Version None)
Quarter: 2006Q4

REPORT INFORMATION
  Report Type: 
  Country: None (occurrence: None)
  Receive Date: 20061009
  Receipt Date: 20060928
  Transmission Date: 20070319
  Serious: Yes (Death, Other)
  Sender: FDA-Public Use
  Company Number: GB-JNJFOC-20060505382

PATIENT
  Age: 76 Year
  Sex: Female

DRUGS (15)
  1. REMICADE [Suspect]
     Indication: PUSTULAR PSORIASIS
     Dosage: 3MG/KG
     Route: 042
  2. CYCLOSPORINE [Suspect]
     Indication: PUSTULAR PSORIASIS
     Route: 065
  3. METHOTREXATE [Suspect]
     Indication: PUSTULAR PSORIASIS
     Route: 048
  4. AZATHIOPRINE [Suspect]
     Indication: COLITIS ULCERATIVE
     Route: 065
  5. ACITRETIN [Concomitant]
     Route: 042
  6. HYDROXYUREA [Concomitant]
     Route: 065
  7. ASPIRIN [Concomitant]
     Route: 065
  8. BALSALAZIDE [Concomitant]
     Route: 065
  9. BECLAZONE [Concomitant]
     Route: 065
  10. BECLOBRATE [Concomitant]
     Route: 065
  11. BETNOVATE [Concomitant]
     Route: 065
  12. FUROSEMIDE [Concomitant]
     Route: 065
  13. IPRATROPIUM BROMIDE [Concomitant]
     Route: 065
  14. LANSOPRAZOLE [Concomitant]
     Route: 065
  15. LATANOPROST [Concomitant]
     Route: 065

REACTIONS (6)
  - COLITIS ULCERATIVE [None]
  - JAUNDICE [None]
  - PNEUMONITIS [None]
  - RENAL IMPAIRMENT [None]
  - T-CELL LYMPHOMA [None]
  - THERAPY NON-RESPONDER [None]
